FAERS Safety Report 10050422 (Version 1)
Quarter: 2014Q2

REPORT INFORMATION
  Report Type: Spontaneous
  Country: US (occurrence: US)
  Receive Date: 20140401
  Receipt Date: 20140401
  Transmission Date: 20141212
  Serious: No
  Sender: FDA-Public Use
  Company Number: US-009507513-1403USA002158

PATIENT
  Age: 35 Year
  Sex: Male

DRUGS (5)
  1. CORICIDIN HBP COLD AND FLU [Suspect]
     Indication: NASOPHARYNGITIS
     Dosage: UNK, UNKNOWN
     Route: 048
  2. CORICIDIN HBP COLD AND FLU [Suspect]
     Indication: HEADACHE
  3. CORICIDIN HBP COLD AND FLU [Suspect]
     Indication: RESPIRATORY TRACT CONGESTION
  4. CORICIDIN HBP COLD AND FLU [Suspect]
     Indication: RHINORRHOEA
  5. CORICIDIN HBP COLD AND FLU [Suspect]
     Indication: THROAT IRRITATION

REACTIONS (2)
  - Sinusitis [Unknown]
  - Drug effect decreased [Unknown]
